FAERS Safety Report 25836158 (Version 3)
Quarter: 2025Q4

REPORT INFORMATION
  Report Type: Spontaneous
  Country: US (occurrence: US)
  Receive Date: 20250923
  Receipt Date: 20251001
  Transmission Date: 20260118
  Serious: Yes (Other)
  Sender: GILEAD
  Company Number: US-GILEAD-2025-0724006

PATIENT
  Sex: Male

DRUGS (2)
  1. YEZTUGO [Suspect]
     Active Substance: LENACAPAVIR SODIUM
     Indication: Prophylaxis against HIV infection
     Dosage: INJECTION
     Route: 065
     Dates: start: 20250804
  2. YEZTUGO [Suspect]
     Active Substance: LENACAPAVIR SODIUM
     Indication: Prophylaxis against HIV infection
     Route: 065

REACTIONS (3)
  - Injection site cellulitis [Recovered/Resolved]
  - Injection site erythema [Not Recovered/Not Resolved]
  - Injection site nodule [Unknown]
